FAERS Safety Report 18040185 (Version 2)
Quarter: 2020Q3

REPORT INFORMATION
  Report Type: Spontaneous
  Country: US (occurrence: US)
  Receive Date: 20200717
  Receipt Date: 20200721
  Transmission Date: 20201103
  Serious: No
  Sender: FDA-Public Use
  Company Number: US-PFIZER INC-2020273651

PATIENT
  Age: 64 Year
  Sex: Female
  Weight: 52.62 kg

DRUGS (2)
  1. DUAVEE [Suspect]
     Active Substance: BAZEDOXIFENE ACETATE\ESTROGENS, CONJUGATED
     Indication: BONE DISORDER
     Dosage: UNK, (0.45/20MG TABLETS BY MOUTH NIGHTLY)
     Route: 048
  2. VITAMIN D3 [Concomitant]
     Active Substance: CHOLECALCIFEROL
     Indication: BONE DISORDER
     Dosage: 1 DF, DAILY
     Route: 048

REACTIONS (6)
  - Frustration tolerance decreased [Unknown]
  - Bone loss [Unknown]
  - Endocrine disorder [Unknown]
  - Night sweats [Unknown]
  - Osteoporosis [Unknown]
  - Drug ineffective [Unknown]
